FAERS Safety Report 11145330 (Version 1)
Quarter: 2015Q2

REPORT INFORMATION
  Report Type: Spontaneous
  Country: US (occurrence: US)
  Receive Date: 20150526
  Receipt Date: 20150526
  Transmission Date: 20150821
  Serious: No
  Sender: FDA-Public Use
  Company Number: US-TEVA-490780USA

PATIENT
  Sex: Female

DRUGS (2)
  1. ESTRADIOL. [Suspect]
     Active Substance: ESTRADIOL
  2. FLURBIPROFEN. [Suspect]
     Active Substance: FLURBIPROFEN

REACTIONS (1)
  - Gastrointestinal disorder [Unknown]
